APPROVED DRUG PRODUCT: IBU-TAB
Active Ingredient: IBUPROFEN
Strength: 400MG
Dosage Form/Route: TABLET;ORAL
Application: A071058 | Product #001
Applicant: ALRA LABORATORIES INC
Approved: Aug 11, 1988 | RLD: No | RS: No | Type: DISCN